FAERS Safety Report 6676721-7 (Version None)
Quarter: 2010Q2

REPORT INFORMATION
  Report Type: 
  Country: None (occurrence: None)
  Receive Date: 20100412
  Receipt Date: 20100329
  Transmission Date: 20101027
  Serious: Yes (Hospitalization)
  Sender: FDA-Public Use
  Company Number: US-ROCHE-679419

PATIENT
  Sex: Male
  Weight: 64.5 kg

DRUGS (13)
  1. TOCILIZUMAB [Suspect]
     Indication: RHEUMATOID ARTHRITIS
     Dosage: STARTING DOSE: 64.5 MG/KG
     Route: 042
     Dates: start: 20091118, end: 20091118
  2. TOCILIZUMAB [Suspect]
     Route: 042
     Dates: start: 20091216
  3. TOCILIZUMAB [Suspect]
     Route: 042
     Dates: start: 20100112
  4. TOCILIZUMAB [Suspect]
     Route: 042
     Dates: start: 20100215
  5. RELAFEN [Concomitant]
     Route: 048
     Dates: start: 19990101
  6. PLAQUENIL [Concomitant]
     Indication: RHEUMATOID ARTHRITIS
     Route: 048
     Dates: start: 20090101
  7. LORTAB [Concomitant]
     Indication: RHEUMATOID ARTHRITIS
     Route: 048
     Dates: start: 20050101
  8. FLEXERIL [Concomitant]
     Route: 048
     Dates: start: 20040101
  9. PREDNISONE TAB [Concomitant]
     Route: 048
     Dates: start: 20090619
  10. LEVAQUIN [Concomitant]
     Dosage: FREQUENCY: EVERY DAY
  11. PERCOCET [Concomitant]
     Dosage: FREQUENCY: EVERY 6 HOURS PRN
  12. ADVAIR DISKUS 100/50 [Concomitant]
     Dosage: 1 INHALATION BID
     Route: 055
  13. DUONEB [Concomitant]
     Dosage: FREQUENCY EVERY 6 HOURS

REACTIONS (5)
  - BRONCHITIS [None]
  - CHRONIC OBSTRUCTIVE PULMONARY DISEASE [None]
  - HAEMOPTYSIS [None]
  - PHARYNGEAL ULCERATION [None]
  - PNEUMONIA [None]
